FAERS Safety Report 9171212 (Version 1)
Quarter: 2013Q1

REPORT INFORMATION
  Report Type: Spontaneous
  Country: US (occurrence: US)
  Receive Date: 20130319
  Receipt Date: 20130319
  Transmission Date: 20140127
  Serious: Yes (Life-Threatening, Other)
  Sender: FDA-Public Use
  Company Number: US-ELI_LILLY_AND_COMPANY-US201303003512

PATIENT
  Age: 0 Year
  Sex: 0

DRUGS (1)
  1. PROZAC [Suspect]
     Dosage: 1 DF, UNKNOWN
     Route: 064
     Dates: start: 2009, end: 201012

REACTIONS (6)
  - Neonatal respiratory distress syndrome [Unknown]
  - Neonatal respiratory failure [Unknown]
  - Cardiac murmur [Unknown]
  - Underweight [Unknown]
  - Drug withdrawal syndrome neonatal [Unknown]
  - Foetal exposure during pregnancy [Unknown]
